FAERS Safety Report 24159808 (Version 3)
Quarter: 2024Q3

REPORT INFORMATION
  Report Type: Spontaneous
  Country: US (occurrence: US)
  Receive Date: 20240731
  Receipt Date: 20240814
  Transmission Date: 20241017
  Serious: No
  Sender: AMGEN
  Company Number: US-AMGEN-USASP2024150651

PATIENT
  Age: 9 Year
  Sex: Male

DRUGS (2)
  1. BLINCYTO [Suspect]
     Active Substance: BLINATUMOMAB
     Indication: Product used for unknown indication
     Dosage: 14 MICROGRAM, QD, DOSE ORDERED:107.7 MCG - 7 DAY BAG, DOSE REQUESTED: 78.75 MG
     Route: 065
  2. BLINCYTO [Suspect]
     Active Substance: BLINATUMOMAB
     Dosage: 14 MICROGRAM, QD, DOSE ORDERED:107.7 MCG - 7 DAY BAG, DOSE REQUESTED: 78.75 MG
     Route: 065

REACTIONS (1)
  - Intercepted product administration error [Unknown]

NARRATIVE: CASE EVENT DATE: 20240727
